FAERS Safety Report 8451907-X (Version None)
Quarter: 2012Q2

REPORT INFORMATION
  Report Type: 
  Country: None (occurrence: None)
  Receive Date: 20120620
  Receipt Date: 20120323
  Transmission Date: 20120825
  Serious: No
  Sender: FDA-Public Use
  Company Number: US-VERTEX PHARMACEUTICALS INC.-AE-2012-004280

PATIENT
  Sex: Female

DRUGS (5)
  1. PEGASYS [Concomitant]
     Indication: HEPATITIS C
     Dates: start: 20120209, end: 20120308
  2. REBETOL [Concomitant]
     Indication: HEPATITIS C
     Dates: start: 20120209, end: 20120308
  3. NEXIUM [Concomitant]
     Indication: GASTRITIS
  4. INCIVEK [Suspect]
     Indication: HEPATITIS C
     Route: 048
     Dates: start: 20120209, end: 20120308
  5. LEVOTHYROXINE SODIUM [Concomitant]

REACTIONS (1)
  - ANAEMIA [None]
